FAERS Safety Report 10403288 (Version 1)
Quarter: 2014Q3

REPORT INFORMATION
  Report Type: Spontaneous
  Country: CA (occurrence: CA)
  Receive Date: 20140822
  Receipt Date: 20140822
  Transmission Date: 20150326
  Serious: Yes (Death, Other)
  Sender: FDA-Public Use
  Company Number: CA-PFIZER INC-2014231410

PATIENT
  Age: 39 Year
  Sex: Female
  Weight: 65.76 kg

DRUGS (4)
  1. SUTENT [Suspect]
     Active Substance: SUNITINIB MALATE
     Dosage: 1 DF, UNK
     Route: 048
  2. TYLENOL [Concomitant]
     Active Substance: ACETAMINOPHEN
  3. OXYCONTIN [Concomitant]
     Active Substance: OXYCODONE HYDROCHLORIDE
     Route: 048
  4. LOVENOX [Concomitant]
     Active Substance: ENOXAPARIN SODIUM

REACTIONS (13)
  - Second primary malignancy [Unknown]
  - Pulmonary oedema [Unknown]
  - Hypophagia [Unknown]
  - Haematemesis [Unknown]
  - Soft tissue necrosis [Unknown]
  - Skin necrosis [Unknown]
  - Lymphoma [Unknown]
  - Death [Fatal]
  - Palliative care [Unknown]
  - Skin discolouration [Unknown]
  - Vomiting [Unknown]
  - Skin striae [Unknown]
  - Staphylococcal infection [Unknown]
